FAERS Safety Report 8416407 (Version 4)
Quarter: 2013Q3

REPORT INFORMATION
  Report Type: Spontaneous
  Country: JP (occurrence: JP)
  Receive Date: 20120219
  Receipt Date: 20130723
  Transmission Date: 20140515
  Serious: Yes (Hospitalization)
  Sender: FDA-Public Use
  Company Number: JP-BRISTOL-MYERS SQUIBB COMPANY-16395691

PATIENT
  Age: 63 Year
  Sex: Male
  Weight: 54 kg

DRUGS (7)
  1. ORENCIA FOR INJ 250 MG/VIAL [Suspect]
     Indication: RHEUMATOID ARTHRITIS
     Dosage: POSTPONED FOR 2 WEEKS AND CONTINUED
     Route: 041
     Dates: start: 20111116
  2. AZULFIDINE [Concomitant]
     Dosage: AZULFIDINE -EN?THERY DATES:BEFORE 04JAN2011
     Route: 048
  3. RIMATIL [Concomitant]
     Dosage: TABS,?THERY DATES:BEFORE 04JAN2011
     Route: 048
  4. PREDNISOLONE [Concomitant]
     Dosage: THERY DATES:BEFORE 04JAN2011
     Route: 048
  5. PARIET [Concomitant]
     Dosage: THERY DATES:BEFORE 04JAN2011
     Route: 048
  6. BAYASPIRIN [Concomitant]
     Dosage: THERY DATES:BEFORE 04JAN2011
     Route: 048
  7. HARNAL [Concomitant]
     Dosage: THERY DATES:BEFORE 04JAN2011
     Route: 048

REACTIONS (3)
  - Gallbladder empyema [Unknown]
  - Urinary tract infection [Recovered/Resolved]
  - Fall [Recovered/Resolved]
